FAERS Safety Report 5321639-5 (Version None)
Quarter: 2007Q2

REPORT INFORMATION
  Report Type: 
  Country: None (occurrence: None)
  Receive Date: 20070510
  Receipt Date: 20070503
  Transmission Date: 20071010
  Serious: Yes (Other)
  Sender: FDA-Public Use
  Company Number: DEWYE083119MAR07

PATIENT
  Sex: Male
  Weight: 69 kg

DRUGS (3)
  1. VENLAFAXINE HCL [Suspect]
     Indication: DEPRESSION
     Dosage: 150 MG PER DAY
     Route: 048
     Dates: start: 20070215, end: 20070316
  2. VENLAFAXINE HCL [Suspect]
     Indication: SOCIAL PHOBIA
  3. ZOPICLONE [Concomitant]
     Indication: SLEEP DISORDER
     Dosage: 7.5 MG DAILY
     Route: 048
     Dates: start: 20070215, end: 20070420

REACTIONS (4)
  - ACCOMMODATION DISORDER [None]
  - DRY EYE [None]
  - HEADACHE [None]
  - VISUAL ACUITY REDUCED [None]
